FAERS Safety Report 10434372 (Version 1)
Quarter: 2014Q3

REPORT INFORMATION
  Report Type: Spontaneous
  Country: DE (occurrence: DE)
  Receive Date: 20140905
  Receipt Date: 20140905
  Transmission Date: 20150326
  Serious: Yes (Congenital Anomaly, Other)
  Sender: FDA-Public Use
  Company Number: DE-TEVA-505280GER

PATIENT
  Age: 1 Day
  Sex: Female
  Weight: .79 kg

DRUGS (2)
  1. SULFASALAZINE DELAYED-RELEASE [Suspect]
     Active Substance: SULFASALAZINE
     Route: 064
  2. PREDNISOLON [Suspect]
     Active Substance: PREDNISOLONE
     Route: 064

REACTIONS (9)
  - Small for dates baby [Recovering/Resolving]
  - Small for dates baby [Unknown]
  - Haemangioma congenital [Unknown]
  - Premature baby [Unknown]
  - Hyperbilirubinaemia neonatal [Unknown]
  - Neonatal respiratory distress syndrome [Unknown]
  - Foetal exposure during pregnancy [Unknown]
  - Atrial septal defect [Unknown]
  - Foetal growth restriction [Unknown]

NARRATIVE: CASE EVENT DATE: 20131214
